FAERS Safety Report 4269602-X (Version None)
Quarter: 2004Q1

REPORT INFORMATION
  Report Type: 
  Country: None (occurrence: None)
  Receive Date: 20040112
  Receipt Date: 20031218
  Transmission Date: 20041129
  Serious: Yes (Death)
  Sender: FDA-Public Use
  Company Number: BE-JNJFOC-20031003521

PATIENT
  Age: 15 Year
  Sex: Female

DRUGS (5)
  1. CONTRAMAL (TRAMADOL HYDROCHLORIDE) SUPPOSITORY [Suspect]
     Indication: PHARYNGITIS
     Dosage: 1 DOSE(S), 4 IN 1 DAY, RECTAL
     Route: 054
     Dates: start: 20030516, end: 20030516
  2. CONTRAMAL (TRAMADOL HYDROCHLORIDE) SUPPOSITORY [Suspect]
     Indication: PHARYNGITIS
     Dosage: 1 DOSE(S), 4 IN 1 DAY, RECTAL
     Route: 054
     Dates: start: 20030517, end: 20030517
  3. INDOMETHACIN [Concomitant]
  4. DUOVENT (DUOVENT) [Concomitant]
  5. SERETIDE (SERETIDE) [Concomitant]

REACTIONS (2)
  - ASTHMA [None]
  - EYE REDNESS [None]
